FAERS Safety Report 8101843-3 (Version None)
Quarter: 2012Q1

REPORT INFORMATION
  Report Type: 
  Country: None (occurrence: None)
  Receive Date: 20120126
  Receipt Date: 20120113
  Transmission Date: 20120608
  Serious: Yes (Death)
  Sender: FDA-Public Use
  Company Number: UTC-014663

PATIENT
  Age: 59 Year
  Sex: Female
  Weight: 63.1 kg

DRUGS (5)
  1. REMODULIN [Suspect]
     Indication: PULMONARY HYPERTENSION
     Dosage: 110.88 UG/KG (0.077 UG/KG, 1 IN 1 MIN, SUBCUTANEOUS
     Route: 058
     Dates: start: 20060627
  2. COUMADIN [Concomitant]
  3. TRACLEER [Concomitant]
  4. REVATIO [Concomitant]
  5. DIURETICS [Concomitant]

REACTIONS (1)
  - DEATH [None]
